FAERS Safety Report 19943411 (Version 1)
Quarter: 2021Q4

REPORT INFORMATION
  Report Type: Spontaneous
  Country: US (occurrence: US)
  Receive Date: 20211007
  Receipt Date: 20211007
  Transmission Date: 20220304
  Serious: Yes (Death, Hospitalization)
  Sender: FDA-Public Use
  Company Number: None

PATIENT
  Age: 83 Year
  Sex: Female

DRUGS (25)
  1. OPSUMIT [Suspect]
     Active Substance: MACITENTAN
     Indication: Pulmonary hypertension
     Route: 048
     Dates: start: 20181016
  2. SILDENAFIL [Concomitant]
     Active Substance: SILDENAFIL
  3. METOPROLOL [Concomitant]
     Active Substance: METOPROLOL
  4. DIGOXIN [Concomitant]
     Active Substance: DIGOXIN
  5. SPIRONOLACTONE [Concomitant]
     Active Substance: SPIRONOLACTONE
  6. TORSEMIDE [Concomitant]
     Active Substance: TORSEMIDE
  7. TAMSULOSIN [Concomitant]
     Active Substance: TAMSULOSIN
  8. WARFARIN [Concomitant]
     Active Substance: WARFARIN
  9. HUMULIN N [Concomitant]
     Active Substance: INSULIN HUMAN
  10. Regular humulin [Concomitant]
  11. SENNOSIDES [Concomitant]
     Active Substance: SENNOSIDES
  12. VITAMIN D3 [Concomitant]
     Active Substance: CHOLECALCIFEROL
  13. NORCO [Concomitant]
     Active Substance: ACETAMINOPHEN\HYDROCODONE BITARTRATE
  14. TYLENOL [Concomitant]
     Active Substance: ACETAMINOPHEN
  15. COLACE [Concomitant]
     Active Substance: DOCUSATE SODIUM
  16. MILK OF MAGNESIA [Concomitant]
     Active Substance: MAGNESIUM HYDROXIDE
  17. FERROUS SULFATE [Concomitant]
     Active Substance: FERROUS SULFATE
  18. VITAMIN C [Concomitant]
     Active Substance: ASCORBIC ACID
  19. calcium citrate-vit D3 [Concomitant]
  20. VITAMINS [Concomitant]
     Active Substance: VITAMINS
  21. PREDNISONE [Concomitant]
     Active Substance: PREDNISONE
  22. ARAVA [Concomitant]
     Active Substance: LEFLUNOMIDE
  23. LEVOTHYROXINE [Concomitant]
     Active Substance: LEVOTHYROXINE
  24. GLIPIZIDE [Concomitant]
     Active Substance: GLIPIZIDE
  25. ATORVASTATIN [Concomitant]
     Active Substance: ATORVASTATIN

REACTIONS (8)
  - Renal failure [None]
  - Hypotension [None]
  - Respiratory failure [None]
  - Pneumonia [None]
  - Failure to thrive [None]
  - Heart rate irregular [None]
  - Blood electrolytes abnormal [None]
  - Upper gastrointestinal haemorrhage [None]

NARRATIVE: CASE EVENT DATE: 20210915
